FAERS Safety Report 21612249 (Version 1)
Quarter: 2022Q4

REPORT INFORMATION
  Report Type: Spontaneous
  Country: US (occurrence: US)
  Receive Date: 20221118
  Receipt Date: 20221118
  Transmission Date: 20230112
  Serious: Yes (Other)
  Sender: FDA-Public Use
  Company Number: US-PCCINC-2022-PEL-000661

PATIENT

DRUGS (25)
  1. DEXMEDETOMIDINE [Suspect]
     Active Substance: DEXMEDETOMIDINE
     Indication: Maintenance of anaesthesia
     Dosage: 0.3 MICROGRAM/KILOGRAM/ HOUR (2ND HOUR AND 3RD HOUR)
     Route: 065
  2. DEXMEDETOMIDINE [Suspect]
     Active Substance: DEXMEDETOMIDINE
     Indication: Analgesic therapy
     Dosage: 0.2 MICROGRAM/KILOGRAM/ HOUR (4TH HOUR)
     Route: 065
  3. SEVOFLURANE [Suspect]
     Active Substance: SEVOFLURANE
     Indication: Maintenance of anaesthesia
     Dosage: MAC 0.2?0.6 (1ST HOUR)
     Route: 065
  4. SEVOFLURANE [Suspect]
     Active Substance: SEVOFLURANE
     Dosage: MAC 0.4?0.5 (2ND HOUR)
     Route: 065
  5. SEVOFLURANE [Suspect]
     Active Substance: SEVOFLURANE
     Dosage: MAC 0.2?0.3 (3RD HOUR)
     Route: 065
  6. SEVOFLURANE [Suspect]
     Active Substance: SEVOFLURANE
     Dosage: MAC 0.1 (4 TH HOUR)
     Route: 065
  7. SEVOFLURANE [Suspect]
     Active Substance: SEVOFLURANE
     Dosage: MAC 0.3?0.5 (5TH HOUR)
     Route: 065
  8. SEVOFLURANE [Suspect]
     Active Substance: SEVOFLURANE
     Dosage: MAC 0.5?0.6 (6TH HOUR)
     Route: 065
  9. SEVOFLURANE [Suspect]
     Active Substance: SEVOFLURANE
     Dosage: MAC 0.6?0.8 (7TH HOUR)
     Route: 065
  10. SEVOFLURANE [Suspect]
     Active Substance: SEVOFLURANE
     Dosage: MAC 0.2?0.7 (8TH HOUR)
     Route: 065
  11. PROPOFOL [Suspect]
     Active Substance: PROPOFOL
     Indication: Induction of anaesthesia
     Dosage: 150?175 (MCG/KG/MIN), 1ST HOUR ANS 2ND HOUR
     Route: 065
  12. PROPOFOL [Suspect]
     Active Substance: PROPOFOL
     Indication: Maintenance of anaesthesia
     Dosage: 150 MICROGRAM/KILOGRAM (3RD, 4TH, 5TH)
     Route: 065
  13. PROPOFOL [Suspect]
     Active Substance: PROPOFOL
     Dosage: 80?150 MICROGRAM/KILOGRAM/MIN, 6TH HOUR
     Route: 065
  14. PROPOFOL [Suspect]
     Active Substance: PROPOFOL
     Dosage: 80 MICROGRAM/KILOGRAM/ MIN, 7TH HOUR
     Route: 065
  15. PROPOFOL [Suspect]
     Active Substance: PROPOFOL
     Dosage: 200 MICROGRAM (INDUCTION)
     Route: 065
  16. PROPOFOL [Suspect]
     Active Substance: PROPOFOL
     Dosage: 100 MICROGRAM, 1ST HOUR
     Route: 065
  17. REMIFENTANIL HYDROCHLORIDE [Suspect]
     Active Substance: REMIFENTANIL HYDROCHLORIDE
     Indication: Maintenance of anaesthesia
     Dosage: 0.3 MCG/KG/H (FROM 2ND, 3RD TO 7TH HOUR)
     Route: 065
  18. REMIFENTANIL HYDROCHLORIDE [Suspect]
     Active Substance: REMIFENTANIL HYDROCHLORIDE
     Dosage: 0.2 MCG/KG/H (INDUCTION)
     Route: 065
  19. REMIFENTANIL HYDROCHLORIDE [Suspect]
     Active Substance: REMIFENTANIL HYDROCHLORIDE
     Dosage: 0.25?0.3 MCG/KG/H (1ST HOUR)
     Route: 065
  20. ROCURONIUM [Concomitant]
     Active Substance: ROCURONIUM BROMIDE
     Indication: Product used for unknown indication
     Dosage: 50 MILLIGRAM (INDUCTION)
     Route: 065
  21. ROCURONIUM [Concomitant]
     Active Substance: ROCURONIUM BROMIDE
     Dosage: 70 MILLIGRAM (1ST HOUR)
     Route: 065
  22. LIDOCAINE [Concomitant]
     Active Substance: LIDOCAINE
     Indication: Product used for unknown indication
     Dosage: 100 MILLIGRAM
     Route: 065
  23. FENTANYL [Concomitant]
     Active Substance: FENTANYL
     Indication: Product used for unknown indication
     Dosage: 50 MICROGRAM (INDUCTION)
     Route: 065
  24. FENTANYL [Concomitant]
     Active Substance: FENTANYL
     Dosage: 50 MICROGRAM (1ST HOUR)
     Route: 065
  25. MIDAZOLAM [Concomitant]
     Active Substance: MIDAZOLAM
     Indication: Product used for unknown indication
     Dosage: 2 MILLIGRAM (INDUCTION)
     Route: 065

REACTIONS (1)
  - Diabetes insipidus [Recovering/Resolving]
